FAERS Safety Report 7631861-0 (Version None)
Quarter: 2011Q3

REPORT INFORMATION
  Report Type: 
  Country: None (occurrence: None)
  Receive Date: 20110725
  Receipt Date: 20110418
  Transmission Date: 20111222
  Serious: No
  Sender: FDA-Public Use
  Company Number: US-BRISTOL-MYERS SQUIBB COMPANY-15681190

PATIENT
  Age: 80 Year
  Sex: Female

DRUGS (1)
  1. COUMADIN [Suspect]
     Indication: THROMBOSIS
     Dates: start: 20101201

REACTIONS (6)
  - HEADACHE [None]
  - HOT FLUSH [None]
  - TINNITUS [None]
  - INSOMNIA [None]
  - ASTHENIA [None]
  - MEMORY IMPAIRMENT [None]
